FAERS Safety Report 24664518 (Version 1)
Quarter: 2024Q4

REPORT INFORMATION
  Report Type: Spontaneous
  Country: GB (occurrence: GB)
  Receive Date: 20241126
  Receipt Date: 20241126
  Transmission Date: 20250114
  Serious: Yes (Other)
  Sender: DAIICHI
  Company Number: None

PATIENT
  Age: 65 Year
  Sex: Male
  Weight: 91 kg

DRUGS (4)
  1. EDOXABAN [Suspect]
     Active Substance: EDOXABAN
     Indication: Product used for unknown indication
     Dosage: 1 DOSAGE FORM, QD (ONE TO BE TAKEN EACH DAY)
     Route: 065
     Dates: start: 20241015
  2. NYSTATIN [Concomitant]
     Active Substance: NYSTATIN
     Indication: Product used for unknown indication
     Dosage: 28 ML, QID (1 ML TO BE DROPPED INTO THE MOUTH FOUR TIMES A DAY.)
     Route: 048
     Dates: start: 20240816, end: 20240914
  3. SPIKEVAX [Concomitant]
     Active Substance: CX-046684
     Indication: Product used for unknown indication
     Dosage: 0.5 ML
     Route: 030
     Dates: start: 20241019
  4. FUSIDIC ACID [Concomitant]
     Active Substance: FUSIDIC ACID
     Indication: Product used for unknown indication
     Dosage: 30 G, TID (APPLY THREE TIME DAILY TO AFFECTED AREA ON FACE FOR 7-10 DAYS)
     Route: 061
     Dates: start: 20241022

REACTIONS (1)
  - Memory impairment [Unknown]
